FAERS Safety Report 16413741 (Version 1)
Quarter: 2019Q2

REPORT INFORMATION
  Report Type: Spontaneous
  Country: US (occurrence: US)
  Receive Date: 20190611
  Receipt Date: 20190611
  Transmission Date: 20190711
  Serious: No
  Sender: FDA-Public Use
  Company Number: US-BAYER-2019-112164

PATIENT
  Sex: Female
  Weight: 63.49 kg

DRUGS (2)
  1. MIRALAX [Suspect]
     Active Substance: POLYETHYLENE GLYCOL 3350
     Indication: GASTROINTESTINAL DISORDER
     Dosage: 17 G, QD IN 8OZ COFFEE
     Route: 048
     Dates: start: 20190606, end: 20190607
  2. FLAXSEED [Suspect]
     Active Substance: FLAX SEED

REACTIONS (1)
  - Urticaria [Not Recovered/Not Resolved]
